FAERS Safety Report 4278455-5 (Version None)
Quarter: 2004Q1

REPORT INFORMATION
  Report Type: 
  Country: None (occurrence: None)
  Receive Date: 20040121
  Receipt Date: 20040107
  Transmission Date: 20041129
  Serious: No
  Sender: FDA-Public Use
  Company Number: USA031254897

PATIENT
  Age: 81 Year
  Sex: Female

DRUGS (1)
  1. EVISTA [Suspect]

REACTIONS (5)
  - BURNING SENSATION [None]
  - DYSPNOEA [None]
  - LOWER EXTREMITY MASS [None]
  - MUSCLE CRAMP [None]
  - THROMBOSIS [None]
